FAERS Safety Report 6392105-3 (Version None)
Quarter: 2009Q4

REPORT INFORMATION
  Report Type: 
  Country: None (occurrence: None)
  Receive Date: 20091007
  Receipt Date: 20090928
  Transmission Date: 20100525
  Serious: Yes (Disabling)
  Sender: FDA-Public Use
  Company Number: US-MERCK-0906USA00694

PATIENT
  Age: 63 Year
  Sex: Female
  Weight: 73 kg

DRUGS (1)
  1. FOSAMAX [Suspect]
     Indication: OSTEOPOROSIS
     Route: 048
     Dates: start: 20050317, end: 20080101

REACTIONS (15)
  - BONE DISORDER [None]
  - EDENTULOUS [None]
  - EXOSTOSIS [None]
  - FRACTURE [None]
  - GINGIVAL BLEEDING [None]
  - GINGIVAL INFECTION [None]
  - HYPOAESTHESIA ORAL [None]
  - IMPAIRED HEALING [None]
  - JAW DISORDER [None]
  - OEDEMA MOUTH [None]
  - ORAL INFECTION [None]
  - ORAL PAIN [None]
  - OSTEONECROSIS [None]
  - PARAESTHESIA [None]
  - STOMATITIS [None]
